FAERS Safety Report 22273792 (Version 1)
Quarter: 2023Q2

REPORT INFORMATION
  Report Type: Spontaneous
  Country: CN (occurrence: CN)
  Receive Date: 20230502
  Receipt Date: 20230502
  Transmission Date: 20230721
  Serious: Yes (Other)
  Sender: FDA-Public Use
  Company Number: CN-009507513-2305CHN000145

PATIENT
  Age: 52 Year
  Sex: Female
  Weight: 76 kg

DRUGS (1)
  1. EMEND [Suspect]
     Active Substance: APREPITANT
     Indication: Antiemetic supportive care
     Dosage: 1 TABLET (1 DOSAGE FORM), DAILY (QD)
     Route: 048
     Dates: start: 20230411, end: 20230413

REACTIONS (1)
  - Hepatic function abnormal [Recovering/Resolving]

NARRATIVE: CASE EVENT DATE: 20230414
